FAERS Safety Report 13211239 (Version 3)
Quarter: 2017Q2

REPORT INFORMATION
  Report Type: Spontaneous
  Country: US (occurrence: US)
  Receive Date: 20170210
  Receipt Date: 20170412
  Transmission Date: 20170830
  Serious: No
  Sender: FDA-Public Use
  Company Number: US-PFIZER INC-2017061381

PATIENT
  Age: 66 Year
  Sex: Male
  Weight: 111 kg

DRUGS (4)
  1. CIALIS [Concomitant]
     Active Substance: TADALAFIL
     Dosage: UNK
  2. ADVIL [Suspect]
     Active Substance: IBUPROFEN
     Indication: INFLAMMATION
     Dosage: 200 MG ,TWICE EVERY 8 HOURS FIRST DOSE 4:00 PM, SECOND DOSE ON 12:00 AM MIDNIGHT
     Route: 048
     Dates: start: 20170207, end: 20170208
  3. METFORMIN [Concomitant]
     Active Substance: METFORMIN HYDROCHLORIDE
     Indication: TYPE 2 DIABETES MELLITUS
     Dosage: 2500 MG, 3X/DAY (DAY OF EVENT 500 MG 03:45 PM)
     Route: 048
  4. ADVIL [Suspect]
     Active Substance: IBUPROFEN
     Indication: TENDONITIS
     Dosage: 400 MG, AS NEEDED (TID)
     Route: 048
     Dates: start: 20170206, end: 20170220

REACTIONS (1)
  - Chromaturia [Recovered/Resolved]

NARRATIVE: CASE EVENT DATE: 20170207
